FAERS Safety Report 9838361 (Version 1)
Quarter: 2013Q4

REPORT INFORMATION
  Report Type: Spontaneous
  Country: US (occurrence: None)
  Receive Date: 20131205
  Receipt Date: 20131205
  Transmission Date: 20140711
  Serious: Yes (Hospitalization, Other)
  Sender: FDA-Public Use
  Company Number: 163-POMAL-13093373

PATIENT
  Age: 79 Year
  Sex: Female

DRUGS (4)
  1. POMALYST [Suspect]
     Indication: PLASMA CELL MYELOMA
     Dosage: 2 MG, 14 IN 14 D, UNK
     Dates: start: 20130905
  2. SYNTHROID (LEVOTHYROXINE SODIUM) (UNKNOWN) [Concomitant]
  3. ASPIRIN (ACETYLSALICYLIC ACID) (UNKNOWN) (ACETYLSALICYLIC ACID) [Concomitant]
  4. DEXAMETHASONE (DEXAMETHASONE) (UNKNOWN) [Concomitant]

REACTIONS (3)
  - Anaemia [None]
  - Thrombocytopenia [None]
  - Dizziness [None]
